FAERS Safety Report 18235683 (Version 1)
Quarter: 2020Q3

REPORT INFORMATION
  Report Type: Spontaneous
  Country: LT (occurrence: LT)
  Receive Date: 20200905
  Receipt Date: 20200905
  Transmission Date: 20201103
  Serious: Yes (Hospitalization, Other)
  Sender: FDA-Public Use
  Company Number: LT-ACCORD-199368

PATIENT
  Age: 34 Year
  Sex: Male
  Weight: 85 kg

DRUGS (1)
  1. QUETIAPINE. [Suspect]
     Active Substance: QUETIAPINE
     Dosage: 12 TABLET
     Dates: start: 20200812, end: 20200812

REACTIONS (2)
  - Suicide attempt [Unknown]
  - Altered state of consciousness [Recovered/Resolved]

NARRATIVE: CASE EVENT DATE: 20200812
